FAERS Safety Report 10163612 (Version 1)
Quarter: 2014Q2

REPORT INFORMATION
  Report Type: Spontaneous
  Country: US (occurrence: US)
  Receive Date: 20140509
  Receipt Date: 20140509
  Transmission Date: 20141212
  Serious: No
  Sender: FDA-Public Use
  Company Number: US-TEVA-480847USA

PATIENT
  Age: 34 Year
  Sex: Female
  Weight: 90.8 kg

DRUGS (5)
  1. PLAN B ONE-STEP [Suspect]
     Indication: POST COITAL CONTRACEPTION
     Dosage: 1.5 MILLIGRAM DAILY;
     Route: 063
     Dates: start: 20140407, end: 20140407
  2. ZOLOFT [Concomitant]
     Indication: POSTPARTUM STATE
  3. OMEPRAZOLE [Concomitant]
     Indication: GASTRIC ULCER
  4. OMEPRAZOLE [Concomitant]
     Indication: GASTRIC PH DECREASED
  5. PRENATAL VITAMINS [Concomitant]
     Indication: SUPPLEMENTATION THERAPY

REACTIONS (2)
  - Menstruation irregular [Recovered/Resolved]
  - Exposure during breast feeding [Unknown]
